FAERS Safety Report 5545259-2 (Version None)
Quarter: 2007Q4

REPORT INFORMATION
  Report Type: 
  Country: None (occurrence: None)
  Receive Date: 20071123
  Receipt Date: 20070907
  Transmission Date: 20080405
  Serious: Yes (Other)
  Sender: FDA-Public Use
  Company Number: US-JNJFOC-20070901853

PATIENT
  Age: 24 Year
  Sex: Female
  Weight: 69.4003 kg

DRUGS (2)
  1. LEVAQUIN [Suspect]
     Indication: RESPIRATORY TRACT INFECTION
     Dosage: 500 MG, IN 1 DAY,
     Dates: end: 20070902
  2. LEVAQUIN [Suspect]
     Indication: SINUSITIS
     Dosage: 500 MG, IN 1 DAY,
     Dates: end: 20070902

REACTIONS (1)
  - TENDONITIS [None]
